FAERS Safety Report 22526721 (Version 1)
Quarter: 2023Q2

REPORT INFORMATION
  Report Type: Spontaneous
  Country: KR (occurrence: KR)
  Receive Date: 20230606
  Receipt Date: 20230606
  Transmission Date: 20230722
  Serious: Yes (Hospitalization)
  Sender: FDA-Public Use
  Company Number: KR-ORGANON-O2305KOR003304

PATIENT
  Age: 67 Year
  Sex: Male
  Weight: 43 kg

DRUGS (7)
  1. COZAAR [Suspect]
     Active Substance: LOSARTAN POTASSIUM
     Dosage: 0.5 FORMULATION, (FILM COATED TABLET)
     Route: 048
     Dates: start: 20160917, end: 20161003
  2. ACETYLCYSTEINE [Concomitant]
     Active Substance: ACETYLCYSTEINE
     Indication: Chronic obstructive pulmonary disease
     Dosage: 3 FORMULATION (FORMULATION: HARD CAPSULE POWDER)
     Route: 048
     Dates: start: 20160917, end: 20161003
  3. ALBUTEROL SULFATE [Concomitant]
     Active Substance: ALBUTEROL SULFATE
     Indication: Chronic obstructive pulmonary disease
     Dosage: 5 MILLILITER (ROUTE: LUNG)
     Dates: start: 20160918, end: 20160928
  4. DRIED FERROUS SULPHATE [Concomitant]
     Dosage: 2 FORMULATION
     Route: 048
     Dates: start: 20160917, end: 20161003
  5. SITAGLIPTIN PHOSPHATE [Concomitant]
     Active Substance: SITAGLIPTIN PHOSPHATE
     Dosage: 1 FORMULATION
     Route: 048
     Dates: start: 20160920, end: 20161003
  6. CEFTRIAXONE SODIUM [Concomitant]
     Active Substance: CEFTRIAXONE SODIUM
     Dosage: 1 FORMULATION (FORMULATION: POWDER INJECTION FOR SOLUTION) (ROUTE: VEIN)
     Route: 042
     Dates: start: 20160917, end: 20160924
  7. CLARITHROMYCIN [Concomitant]
     Active Substance: CLARITHROMYCIN
     Dosage: 2 FORMULATION
     Route: 048
     Dates: start: 20160917, end: 20160923

REACTIONS (1)
  - Gastroenteritis [Recovered/Resolved]

NARRATIVE: CASE EVENT DATE: 20161209
